FAERS Safety Report 8511129-0 (Version None)
Quarter: 2012Q3

REPORT INFORMATION
  Report Type: 
  Country: None (occurrence: None)
  Receive Date: 20120702
  Receipt Date: 20120615
  Transmission Date: 20120928
  Serious: Yes (Hospitalization)
  Sender: FDA-Public Use
  Company Number: DSA_58041_2012

PATIENT
  Age: 20 Year
  Sex: Male

DRUGS (2)
  1. VASOTEC / 00574902 / (VASOTEC-ENALAPRIL MALEATE) (NOT SPECIFIED) [Suspect]
     Indication: HYPERTENSION
     Dosage: (5 MG QD ORAL)
     Route: 048
  2. IDURSULFASE (IDURSULFASE) [Suspect]
     Indication: MUCOPOLYSACCHARIDOSIS II
     Dosage: (0.5 MG/KG/WEEK)

REACTIONS (1)
  - IDIOPATHIC THROMBOCYTOPENIC PURPURA [None]
